FAERS Safety Report 21228866 (Version 1)
Quarter: 2022Q3

REPORT INFORMATION
  Report Type: Spontaneous
  Country: US (occurrence: None)
  Receive Date: 20220818
  Receipt Date: 20220818
  Transmission Date: 20221026
  Serious: Yes (Disabling, Other)
  Sender: FDA-Public Use
  Company Number: None

PATIENT
  Age: 60 Year
  Sex: Female
  Weight: 69.75 kg

DRUGS (2)
  1. REPATHA [Suspect]
     Active Substance: EVOLOCUMAB
     Indication: Blood cholesterol increased
     Dosage: OTHER QUANTITY : 1 INJECTION(S);?OTHER FREQUENCY : EVERY TWO WEEKS;?
     Route: 030
  2. Tyenol [Concomitant]

REACTIONS (6)
  - Myalgia [None]
  - Depression [None]
  - Anxiety [None]
  - Fatigue [None]
  - Nasal congestion [None]
  - Dizziness [None]

NARRATIVE: CASE EVENT DATE: 20220706
